FAERS Safety Report 6278330-0 (Version None)
Quarter: 2009Q3

REPORT INFORMATION
  Report Type: 
  Country: None (occurrence: None)
  Receive Date: 20090722
  Receipt Date: 20090710
  Transmission Date: 20100115
  Serious: Yes (Other)
  Sender: FDA-Public Use
  Company Number: GB-PFIZER INC-2009238600

PATIENT
  Age: 35 Year

DRUGS (2)
  1. CHAMPIX [Suspect]
  2. CERAZETTE [Concomitant]
     Dosage: 75 MCG, UNK
     Route: 048

REACTIONS (1)
  - URINARY INCONTINENCE [None]
